FAERS Safety Report 10691698 (Version 1)
Quarter: 2015Q1

REPORT INFORMATION
  Report Type: Spontaneous
  Country: DE (occurrence: DE)
  Receive Date: 20150105
  Receipt Date: 20150105
  Transmission Date: 20150720
  Serious: Yes (Hospitalization, Congenital Anomaly, Other)
  Sender: FDA-Public Use
  Company Number: DE-GLAXOSMITHKLINE-DE2014043227

PATIENT

DRUGS (3)
  1. ELONTRIL [Suspect]
     Active Substance: BUPROPION HYDROCHLORIDE
     Indication: DEPRESSION
     Dosage: 300 [MG/D ]
     Route: 064
     Dates: start: 20121020, end: 20130807
  2. AGYRAX [Concomitant]
     Active Substance: MECLIZINE HYDROCHLORIDE
     Indication: VOMITING IN PREGNANCY
     Dosage: 150 [MG/D ]
     Route: 064
  3. CEFUROXIM [Concomitant]
     Active Substance: CEFUROXIME
     Indication: INFECTION PROPHYLAXIS
     Route: 064
     Dates: start: 20130807, end: 20130807

REACTIONS (5)
  - Agitation neonatal [Recovered/Resolved]
  - Haemangioma [Recovering/Resolving]
  - Exposure during pregnancy [Unknown]
  - Live birth [Unknown]
  - Congenital hydronephrosis [Recovered/Resolved]

NARRATIVE: CASE EVENT DATE: 20130807
